FAERS Safety Report 19728036 (Version 1)
Quarter: 2021Q3

REPORT INFORMATION
  Report Type: Spontaneous
  Country: US (occurrence: US)
  Receive Date: 20210820
  Receipt Date: 20210820
  Transmission Date: 20211014
  Serious: Yes (Disabling, Other)
  Sender: FDA-Public Use
  Company Number: US-SA-2021SA274672

PATIENT

DRUGS (1)
  1. ZANTAC [Suspect]
     Active Substance: RANITIDINE HYDROCHLORIDE
     Dosage: UNK
     Dates: start: 1992, end: 2019

REACTIONS (8)
  - Pain [Unknown]
  - Economic problem [Unknown]
  - Anxiety [Unknown]
  - Renal cancer [Unknown]
  - Impaired work ability [Unknown]
  - Emotional distress [Unknown]
  - Injury [Unknown]
  - Deformity [Unknown]

NARRATIVE: CASE EVENT DATE: 201909
